FAERS Safety Report 19826703 (Version 1)
Quarter: 2021Q3

REPORT INFORMATION
  Report Type: Other
  Country: KR (occurrence: KR)
  Receive Date: 20210914
  Receipt Date: 20210914
  Transmission Date: 20211014
  Serious: Yes (Hospitalization)
  Sender: FDA-Public Use
  Company Number: KR-ROCHE-2906746

PATIENT
  Age: 52 Year
  Sex: Male
  Weight: 78.5 kg

DRUGS (11)
  1. ACPIO [Concomitant]
     Indication: DIABETES MELLITUS
     Route: 048
  2. GLADM [Concomitant]
     Indication: DIABETES MELLITUS
     Route: 048
  3. CARBOPLATIN. [Suspect]
     Active Substance: CARBOPLATIN
     Indication: SMALL CELL LUNG CANCER EXTENSIVE STAGE
     Route: 042
     Dates: start: 20210630
  4. ETOPOSIDE. [Suspect]
     Active Substance: ETOPOSIDE
     Route: 042
     Dates: start: 20210721
  5. CARBOPLATIN. [Suspect]
     Active Substance: CARBOPLATIN
     Route: 042
     Dates: start: 20210721
  6. ZEMIMET SR [Concomitant]
     Indication: DIABETES MELLITUS
     Dosage: 25 /500MG
     Route: 048
  7. ETOPOSIDE. [Suspect]
     Active Substance: ETOPOSIDE
     Route: 042
     Dates: start: 20210816
  8. ATEZOLIZUMAB. [Suspect]
     Active Substance: ATEZOLIZUMAB
     Indication: SMALL CELL LUNG CANCER EXTENSIVE STAGE
     Dosage: SUBSEQUENTLY ON : 21/JUL/2021, 16/AUG/2021
     Route: 041
     Dates: start: 20210630
  9. CARBOPLATIN. [Suspect]
     Active Substance: CARBOPLATIN
     Route: 042
     Dates: start: 20210816
  10. ETOPOSIDE. [Suspect]
     Active Substance: ETOPOSIDE
     Indication: SMALL CELL LUNG CANCER EXTENSIVE STAGE
     Route: 042
     Dates: start: 20210630
  11. DILATREND [Concomitant]
     Active Substance: CARVEDILOL
     Indication: HYPERTENSION
     Route: 048

REACTIONS (2)
  - Dyspnoea [Recovered/Resolved]
  - Skin erosion [Recovering/Resolving]

NARRATIVE: CASE EVENT DATE: 20210713
